FAERS Safety Report 9377594 (Version 1)
Quarter: 2013Q3

REPORT INFORMATION
  Report Type: Report from Study
  Country: DE (occurrence: DE)
  Receive Date: 20130701
  Receipt Date: 20130701
  Transmission Date: 20140515
  Serious: Yes (Hospitalization)
  Sender: FDA-Public Use
  Company Number: PHHY2013DE059515

PATIENT
  Age: 56 Year
  Sex: Female

DRUGS (6)
  1. TACROLIMUS [Suspect]
     Dosage: 7 MG, UNK
     Dates: start: 20120327
  2. TACROLIMUS [Suspect]
     Dosage: 7 MG, BID
     Dates: start: 20130419
  3. MYFORTIC [Suspect]
     Dosage: 720 MG, BID
     Dates: start: 20130327
  4. MYFORTIC [Suspect]
     Dosage: 720 MG, BID
     Dates: start: 20130419
  5. AMLODIPIN [Concomitant]
     Indication: RENAL HYPERTENSION
     Dosage: UNK UKN, UNK
     Dates: start: 20130415
  6. EUTHYROX [Concomitant]
     Indication: HYPOTHYROIDISM
     Dosage: UNK UKN, UNK

REACTIONS (2)
  - Blood creatinine increased [Not Recovered/Not Resolved]
  - Lymphocele [Not Recovered/Not Resolved]
